APPROVED DRUG PRODUCT: DIVALPROEX SODIUM
Active Ingredient: DIVALPROEX SODIUM
Strength: EQ 500MG VALPROIC ACID
Dosage Form/Route: TABLET, EXTENDED RELEASE;ORAL
Application: A090070 | Product #001 | TE Code: AB
Applicant: DOCTOR REDDYS LABORATORIES LTD
Approved: Mar 12, 2012 | RLD: No | RS: No | Type: RX